FAERS Safety Report 15952034 (Version 3)
Quarter: 2019Q2

REPORT INFORMATION
  Report Type: Spontaneous
  Country: US (occurrence: US)
  Receive Date: 20190212
  Receipt Date: 20190521
  Transmission Date: 20190711
  Serious: Yes (Other)
  Sender: FDA-Public Use
  Company Number: US-PFIZER INC-2019056006

PATIENT
  Age: 66 Year
  Sex: Female

DRUGS (2)
  1. FASLODEX [Concomitant]
     Active Substance: FULVESTRANT
     Dosage: UNK
  2. IBRANCE [Suspect]
     Active Substance: PALBOCICLIB
     Indication: NEOPLASM MALIGNANT
     Dosage: 125 MG, CYCLIC(21 DAYS OF CYCLE)
     Route: 048
     Dates: start: 2015

REACTIONS (5)
  - Pulmonary congestion [Unknown]
  - Nasal congestion [Unknown]
  - Cough [Unknown]
  - Infection [Not Recovered/Not Resolved]
  - Respiratory tract infection [Unknown]
